FAERS Safety Report 24007473 (Version 3)
Quarter: 2024Q2

REPORT INFORMATION
  Report Type: Spontaneous
  Country: GB (occurrence: GB)
  Receive Date: 20240625
  Receipt Date: 20240628
  Transmission Date: 20240716
  Serious: Yes (Other)
  Sender: FDA-Public Use
  Company Number: None

PATIENT
  Sex: Female

DRUGS (1)
  1. ATOGEPANT [Suspect]
     Active Substance: ATOGEPANT
     Indication: Migraine
     Dosage: 60MG
     Route: 048

REACTIONS (3)
  - Extrasystoles [Not Recovered/Not Resolved]
  - Fatigue [Unknown]
  - Dyspnoea [Unknown]
